FAERS Safety Report 18203503 (Version 5)
Quarter: 2023Q1

REPORT INFORMATION
  Report Type: Report from Study
  Country: US (occurrence: US)
  Receive Date: 20200827
  Receipt Date: 20230209
  Transmission Date: 20230418
  Serious: Yes (Other)
  Sender: FDA-Public Use
  Company Number: US-SHIRE-US202027618

PATIENT
  Sex: Female

DRUGS (2)
  1. HUMAN IMMUNOGLOBULIN G [Suspect]
     Active Substance: HUMAN IMMUNOGLOBULIN G
     Indication: Primary immunodeficiency syndrome
     Dosage: 30 GRAM, MONTHLY
     Route: 042
  2. HUMAN IMMUNOGLOBULIN G [Suspect]
     Active Substance: HUMAN IMMUNOGLOBULIN G
     Dosage: 25 GRAM, MONTHLY
     Route: 042

REACTIONS (10)
  - Intracranial pressure increased [Unknown]
  - Autoimmune thyroiditis [Unknown]
  - Condition aggravated [Unknown]
  - Papilloedema [Unknown]
  - Weight increased [Unknown]
  - Sleep disorder [Unknown]
  - Hypertonic bladder [Unknown]
  - Headache [Unknown]
  - Influenza [Recovering/Resolving]
  - COVID-19 [Unknown]
